FAERS Safety Report 22624058 (Version 1)
Quarter: 2023Q2

REPORT INFORMATION
  Report Type: Spontaneous
  Country: US (occurrence: US)
  Receive Date: 20230621
  Receipt Date: 20230621
  Transmission Date: 20230722
  Serious: Yes (Hospitalization)
  Sender: FDA-Public Use
  Company Number: US-CTI BIOPHARMA-2023US03738

PATIENT

DRUGS (30)
  1. VONJO [Suspect]
     Active Substance: PACRITINIB
     Indication: Myelofibrosis
     Dosage: 200 MG, BID
     Route: 048
     Dates: start: 20220412
  2. ALLOPURINOL [Concomitant]
     Active Substance: ALLOPURINOL
  3. AVODART [Concomitant]
     Active Substance: DUTASTERIDE
  4. CALCIUM\VITAMIN D [Concomitant]
     Active Substance: CALCIUM\VITAMIN D
  5. MINERALS\VITAMINS [Concomitant]
     Active Substance: MINERALS\VITAMINS
  6. CHLORPROMAZINE [Concomitant]
     Active Substance: CHLORPROMAZINE
  7. CRESTOR [Concomitant]
     Active Substance: ROSUVASTATIN CALCIUM
  8. FISH OIL [Concomitant]
     Active Substance: FISH OIL
  9. MELATONIN [Concomitant]
     Active Substance: MELATONIN
  10. VITAMIN B12 [Concomitant]
     Active Substance: CYANOCOBALAMIN
  11. VITAMIN C [Concomitant]
     Active Substance: ASCORBIC ACID
  12. VITAMIN E [Concomitant]
     Active Substance: .ALPHA.-TOCOPHEROL
  13. DANAZOL [Concomitant]
     Active Substance: DANAZOL
  14. DEXAMETHASONE [Concomitant]
     Active Substance: DEXAMETHASONE
  15. JAKAFI [Concomitant]
     Active Substance: RUXOLITINIB
  16. LANSOPRAZOLE [Concomitant]
     Active Substance: LANSOPRAZOLE
  17. LYRICA [Concomitant]
     Active Substance: PREGABALIN
  18. MEGESTROL [Concomitant]
     Active Substance: MEGESTROL
  19. METOCLOPRAMIDE [Concomitant]
     Active Substance: METOCLOPRAMIDE
  20. METOPROLOL [Concomitant]
     Active Substance: METOPROLOL
  21. NIFEDIPINE [Concomitant]
     Active Substance: NIFEDIPINE
  22. NORVASC [Concomitant]
     Active Substance: AMLODIPINE BESYLATE
  23. ONDANSETRON [Concomitant]
     Active Substance: ONDANSETRON
  24. PRISTIQ EXTENDED-RELEASE [Concomitant]
     Active Substance: DESVENLAFAXINE SUCCINATE
  25. SIMVASTATIN [Concomitant]
     Active Substance: SIMVASTATIN
  26. SUCRALFATE [Concomitant]
     Active Substance: SUCRALFATE
  27. TAMSULOSIN [Concomitant]
     Active Substance: TAMSULOSIN
  28. VESICARE [Concomitant]
     Active Substance: SOLIFENACIN SUCCINATE
  29. VYTORIN [Concomitant]
     Active Substance: EZETIMIBE\SIMVASTATIN
  30. XANAX [Concomitant]
     Active Substance: ALPRAZOLAM

REACTIONS (1)
  - Dysphagia [Unknown]

NARRATIVE: CASE EVENT DATE: 20230607
